FAERS Safety Report 9443820 (Version 1)
Quarter: 2013Q3

REPORT INFORMATION
  Report Type: Spontaneous
  Country: US (occurrence: US)
  Receive Date: 20130806
  Receipt Date: 20130806
  Transmission Date: 20140515
  Serious: Yes (Other)
  Sender: FDA-Public Use
  Company Number: US-RB-054105-13

PATIENT
  Age: 24 Year
  Sex: Female

DRUGS (5)
  1. BUPRENORPHINE GENERIC [Suspect]
     Indication: DRUG DEPENDENCE
     Route: 060
     Dates: start: 20130514
  2. SUBOXONE FILM [Suspect]
     Indication: DRUG DEPENDENCE
     Dosage: SUBOXONE FILM
     Route: 060
     Dates: end: 20130513
  3. XANAX [Suspect]
     Indication: ANXIETY
     Dosage: 0.5 MG THREE TIMES A DAY WHEN NEEDED
     Route: 065
  4. EFFEXOR [Suspect]
     Indication: DEPRESSION
     Route: 065
  5. LAMICTAL [Suspect]
     Indication: DEPRESSION
     Route: 065

REACTIONS (4)
  - Exposure during pregnancy [Recovered/Resolved]
  - Urinary tract infection [Unknown]
  - Foetal heart rate abnormal [Recovered/Resolved]
  - Abortion induced [Recovered/Resolved]
